FAERS Safety Report 6240278-5 (Version None)
Quarter: 2009Q2

REPORT INFORMATION
  Report Type: 
  Country: None (occurrence: None)
  Receive Date: 20090623
  Receipt Date: 20080528
  Transmission Date: 20091009
  Serious: No
  Sender: FDA-Public Use
  Company Number: US-ASTRAZENECA-2008UW10831

PATIENT
  Age: 60 Year
  Sex: Female
  Weight: 68 kg

DRUGS (7)
  1. PULMICORT FLEXHALER [Suspect]
     Indication: ASTHMA
     Route: 055
  2. PULMICORT FLEXHALER [Suspect]
     Indication: PNEUMONIA
     Route: 055
  3. ALBUTEROL [Concomitant]
  4. XOPENEX [Concomitant]
  5. XOPENEX [Concomitant]
  6. SPIRIVA [Concomitant]
  7. ANTIBIOTICS [Concomitant]

REACTIONS (2)
  - HEART RATE INCREASED [None]
  - ILL-DEFINED DISORDER [None]
